FAERS Safety Report 23519195 (Version 1)
Quarter: 2024Q1

REPORT INFORMATION
  Report Type: Spontaneous
  Country: US (occurrence: US)
  Receive Date: 20240213
  Receipt Date: 20240213
  Transmission Date: 20240410
  Serious: Yes (Hospitalization)
  Sender: FDA-Public Use
  Company Number: US-PFIZER INC-202400040354

PATIENT
  Age: 66 Year
  Sex: Female

DRUGS (6)
  1. IBRANCE [Suspect]
     Active Substance: PALBOCICLIB
     Dosage: TAKE 1 TABLET BY MOUTH ONCE DAILY ON DAYS 1 TO 21, FOLLOWED BY 7 DAYS OF REST, REPEATED EVERY 28 DAY
     Route: 048
     Dates: end: 202401
  2. VALSARTAN [Concomitant]
     Active Substance: VALSARTAN
  3. LEVOTHYROXINE [Concomitant]
     Active Substance: LEVOTHYROXINE\LEVOTHYROXINE SODIUM
  4. FASLODEX [Concomitant]
     Active Substance: FULVESTRANT
  5. ATORVASTATIN [Concomitant]
     Active Substance: ATORVASTATIN
  6. XGEVA [Concomitant]
     Active Substance: DENOSUMAB

REACTIONS (4)
  - Spinal fusion surgery [Unknown]
  - Amnesia [Unknown]
  - Dry skin [Unknown]
  - Fatigue [Unknown]

NARRATIVE: CASE EVENT DATE: 20240201
